FAERS Safety Report 7555817-1 (Version None)
Quarter: 2011Q2

REPORT INFORMATION
  Report Type: 
  Country: None (occurrence: None)
  Receive Date: 20110618
  Receipt Date: 20090529
  Transmission Date: 20111010
  Serious: Yes (Death, Hospitalization, Other)
  Sender: FDA-Public Use
  Company Number: US-BAYER-200922027NA

PATIENT
  Age: 65 Year
  Sex: Female
  Weight: 81.633 kg

DRUGS (22)
  1. CARDIZEM [Concomitant]
     Indication: HYPERTENSION
     Dosage: 180 MG, QD
     Route: 048
  2. ACETYLSALICYLIC ACID SRT [Concomitant]
     Dosage: 81 MG, QD
     Route: 048
  3. TRASYLOL [Suspect]
     Dosage: 25ML/HR DRIP FOR APPROXIMATELY 4 HOURS
     Route: 041
     Dates: start: 20020516, end: 20020516
  4. RED BLOOD CELLS [Concomitant]
     Dosage: 3 U, ONCE
     Route: 042
     Dates: start: 20020516
  5. NIPRIDE [Concomitant]
     Dosage: UNK
     Dates: start: 20020516, end: 20020516
  6. BUMEX [Concomitant]
     Dosage: UNK
     Dates: start: 20020516, end: 20020516
  7. VERSED [Concomitant]
     Dosage: UNK
     Dates: start: 20020516, end: 20020516
  8. AZMACORT [Concomitant]
     Dosage: 2 PUFF(S), BID
     Route: 048
  9. DEMADEX [Concomitant]
     Dosage: 20 MG, QD
     Route: 048
  10. CORDARONE [Concomitant]
  11. ALTACE [Concomitant]
     Dosage: 2.5 MG, QD
     Route: 048
  12. TRASYLOL [Suspect]
     Indication: MITRAL VALVE REPAIR
     Dosage: 100ML LOADING DOSE
     Route: 042
     Dates: start: 20020516, end: 20020516
  13. FRESH FROZEN PLASMA [Concomitant]
     Dosage: 28 U, ONCE
     Route: 042
     Dates: start: 20020516
  14. LIPITOR [Concomitant]
     Dosage: 40 MG, QD
     Route: 048
  15. TRASYLOL [Suspect]
     Indication: CORONARY ARTERY BYPASS
     Dosage: 1 ML, ONCE, INTIAL TEST DOSE
     Route: 042
     Dates: start: 20020516, end: 20020516
  16. CARDIZEM [Concomitant]
     Indication: CHEST PAIN
  17. AMARYL [Concomitant]
     Dosage: 2 MG, QD
     Route: 048
  18. XANAX [Concomitant]
     Route: 048
  19. LASIX [Concomitant]
     Dosage: 40 MG
     Dates: start: 20020516, end: 20020516
  20. SODIUM BICARBONATE [Concomitant]
     Dosage: UNK
     Dates: start: 20020516, end: 20020516
  21. AVANDIA [Concomitant]
     Dosage: 4 MG, QD
     Route: 048
  22. CALCIUM CHLORIDE [Concomitant]
     Dosage: UNK
     Dates: start: 20020516, end: 20020516

REACTIONS (10)
  - DEATH [None]
  - GASTROINTESTINAL HAEMORRHAGE [None]
  - FEAR [None]
  - DEPRESSION [None]
  - ANHEDONIA [None]
  - RENAL FAILURE [None]
  - ANXIETY [None]
  - UNEVALUABLE EVENT [None]
  - PAIN [None]
  - INJURY [None]
